FAERS Safety Report 15955351 (Version 7)
Quarter: 2019Q3

REPORT INFORMATION
  Report Type: Spontaneous
  Country: CA (occurrence: CA)
  Receive Date: 20190213
  Receipt Date: 20190913
  Transmission Date: 20191004
  Serious: Yes (Other)
  Sender: FDA-Public Use
  Company Number: CA-CELLTRION INC.-2019CA018320

PATIENT

DRUGS (14)
  1. INFLECTRA [Suspect]
     Active Substance: INFLIXIMAB-DYYB
     Dosage: 400 MG, EVERY 4 WEEKS
     Route: 042
     Dates: start: 20190806, end: 20190806
  2. INFLECTRA [Suspect]
     Active Substance: INFLIXIMAB-DYYB
     Dosage: 400 MG, EVERY 4 WEEKS
     Route: 042
     Dates: start: 20190903, end: 20190903
  3. HYDROMORPHONE [Concomitant]
     Active Substance: HYDROMORPHONE
     Dosage: 2 MG, UNK
     Route: 048
  4. LEUCOVORIN CALCIUM. [Concomitant]
     Active Substance: LEUCOVORIN CALCIUM
     Dosage: 10 MG, UNK (ON DAY PRIOR TO METHOTREXATE)
     Route: 048
  5. PREDNISONE. [Concomitant]
     Active Substance: PREDNISONE
     Dosage: UNK (MULITPLE COURSES)
  6. ENTOCORT [Concomitant]
     Active Substance: BUDESONIDE
     Dosage: 9 MG, ONCE DAILY
     Route: 048
     Dates: end: 201812
  7. INFLECTRA [Suspect]
     Active Substance: INFLIXIMAB-DYYB
     Dosage: 400 MG, EVERY 8 WEEKS
     Route: 042
     Dates: start: 20190130, end: 20190130
  8. METHOTREXATE. [Concomitant]
     Active Substance: METHOTREXATE
     Dosage: 25 MG, WEEKLY
     Route: 058
     Dates: start: 2018
  9. ZOPICLONE [Concomitant]
     Active Substance: ZOPICLONE
     Dosage: 7.5 MG, AS NEEDED
     Route: 048
  10. INFLECTRA [Suspect]
     Active Substance: INFLIXIMAB-DYYB
     Dosage: 400 MG, EVERY 8 WEEKS
     Route: 042
     Dates: start: 20190514, end: 20190514
  11. INFLECTRA [Suspect]
     Active Substance: INFLIXIMAB-DYYB
     Indication: CROHN^S DISEASE
     Dosage: 400 MG ON 0,2,6 WEEKS, THEN EVERY 8 WEEKS
     Route: 042
     Dates: start: 20181213, end: 20181213
  12. INFLECTRA [Suspect]
     Active Substance: INFLIXIMAB-DYYB
     Dosage: 400 MG ON 0,2,6 WEEKS, THEN EVERY 8 WEEKS
     Route: 042
     Dates: start: 20181227, end: 20181227
  13. INFLECTRA [Suspect]
     Active Substance: INFLIXIMAB-DYYB
     Dosage: 400 MG, RESCUE DOSE
     Route: 042
     Dates: start: 20190524, end: 20190524
  14. SULFASALAZINE. [Concomitant]
     Active Substance: SULFASALAZINE
     Dosage: 500 MG, 3X/DAY

REACTIONS (12)
  - Abdominal distension [Unknown]
  - Muscle spasms [Unknown]
  - Condition aggravated [Not Recovered/Not Resolved]
  - Inflammatory bowel disease [Unknown]
  - Fatigue [Not Recovered/Not Resolved]
  - Arthralgia [Unknown]
  - Off label use [Unknown]
  - Pneumonia [Unknown]
  - Pain [Not Recovered/Not Resolved]
  - Inappropriate schedule of product administration [Unknown]
  - Rheumatoid arthritis [Not Recovered/Not Resolved]
  - Nausea [Unknown]

NARRATIVE: CASE EVENT DATE: 20190521
